FAERS Safety Report 12434507 (Version 13)
Quarter: 2018Q3

REPORT INFORMATION
  Report Type: Report from Study
  Country: US (occurrence: US)
  Receive Date: 20160603
  Receipt Date: 20180906
  Transmission Date: 20181010
  Serious: Yes (Hospitalization, Other)
  Sender: FDA-Public Use
  Company Number: US-ACTELION-A-NJ2016-137064

PATIENT
  Age: 62 Year
  Sex: Female
  Weight: 77.98 kg

DRUGS (4)
  1. ADCIRCA [Concomitant]
     Active Substance: TADALAFIL
  2. OPSUMIT [Suspect]
     Active Substance: MACITENTAN
     Indication: PULMONARY HYPERTENSION
     Dosage: 10 MG, QD
     Route: 048
     Dates: start: 20150302
  3. XARELTO [Concomitant]
     Active Substance: RIVAROXABAN
  4. ATORVASTATIN [Suspect]
     Active Substance: ATORVASTATIN
     Indication: PRODUCT USED FOR UNKNOWN INDICATION
     Dosage: UNK
     Route: 065

REACTIONS (25)
  - Dizziness exertional [Unknown]
  - Malaise [Unknown]
  - Vomiting [Unknown]
  - Dry mouth [Unknown]
  - Pyrexia [Unknown]
  - Dizziness [Unknown]
  - Scleroderma [Unknown]
  - B-cell lymphoma [Not Recovered/Not Resolved]
  - Cough [Unknown]
  - Asthenia [Unknown]
  - Nausea [Not Recovered/Not Resolved]
  - Hypertension [Unknown]
  - Weight decreased [Unknown]
  - Alopecia [Unknown]
  - Orthostatic hypotension [Unknown]
  - Insomnia [Unknown]
  - Viral infection [Unknown]
  - Hypotension [Unknown]
  - Nasopharyngitis [Unknown]
  - Restless legs syndrome [Unknown]
  - Thrombophlebitis superficial [Unknown]
  - Gastrointestinal motility disorder [Unknown]
  - Connective tissue disorder [Not Recovered/Not Resolved]
  - Syncope [Unknown]
  - Balance disorder [Unknown]

NARRATIVE: CASE EVENT DATE: 20150316
